FAERS Safety Report 4943932-8 (Version None)
Quarter: 2006Q1

REPORT INFORMATION
  Report Type: 
  Country: None (occurrence: None)
  Receive Date: 20060313
  Receipt Date: 20060313
  Transmission Date: 20060701
  Serious: Yes (Other)
  Sender: FDA-Public Use
  Company Number: None

PATIENT
  Age: 32 Year
  Sex: Male
  Weight: 101.6057 kg

DRUGS (2)
  1. METOCLOPRAMIDE [Suspect]
     Indication: POST PROCEDURAL NAUSEA
     Dosage: 10MG  IV  Q8HR
     Route: 042
     Dates: start: 20060211, end: 20060220
  2. METOCLOPRAMIDE [Suspect]
     Indication: POST PROCEDURAL VOMITING
     Dosage: 10MG  IV  Q8HR
     Route: 042
     Dates: start: 20060211, end: 20060220

REACTIONS (4)
  - ALANINE AMINOTRANSFERASE INCREASED [None]
  - ASPARTATE AMINOTRANSFERASE INCREASED [None]
  - NEUROLEPTIC MALIGNANT SYNDROME [None]
  - PNEUMONIA ASPIRATION [None]
